FAERS Safety Report 7373251-4 (Version None)
Quarter: 2011Q1

REPORT INFORMATION
  Report Type: 
  Country: None (occurrence: None)
  Receive Date: 20110324
  Receipt Date: 20110223
  Transmission Date: 20110831
  Serious: No
  Sender: FDA-Public Use
  Company Number: US-BAYER-2011-019311

PATIENT

DRUGS (7)
  1. FISH OIL [Concomitant]
  2. VITAMIN B6 [Concomitant]
  3. ASPIRIN [Suspect]
     Indication: HEADACHE
  4. SUBOXONE [Concomitant]
     Indication: HEADACHE
  5. VITAMIN B-12 [Concomitant]
     Indication: VITAMIN SUPPLEMENTATION
  6. ALEVE (CAPLET) [Suspect]
     Indication: HEADACHE
  7. VITAMIN D [Concomitant]

REACTIONS (1)
  - DRUG INEFFECTIVE [None]
